FAERS Safety Report 7578290-6 (Version None)
Quarter: 2011Q2

REPORT INFORMATION
  Report Type: 
  Country: None (occurrence: None)
  Receive Date: 20110628
  Receipt Date: 20110621
  Transmission Date: 20111010
  Serious: Yes (Hospitalization)
  Sender: FDA-Public Use
  Company Number: AU-B.I. PHARMACEUTICALS,INC./RIDGEFIELD-2011-AU-00364AU

PATIENT
  Sex: Female

DRUGS (3)
  1. FLECIANIDE [Concomitant]
  2. PRADAXA [Suspect]
     Dates: start: 20110615
  3. PRADAXA [Suspect]
     Indication: ATRIAL FIBRILLATION
     Dosage: 220 MG
     Dates: start: 20110603

REACTIONS (3)
  - PALLOR [None]
  - PERIPHERAL ISCHAEMIA [None]
  - PERIPHERAL EMBOLISM [None]
